FAERS Safety Report 26104292 (Version 2)
Quarter: 2025Q4

REPORT INFORMATION
  Report Type: Spontaneous
  Country: US (occurrence: US)
  Receive Date: 20251130
  Receipt Date: 20251210
  Transmission Date: 20260117
  Serious: No
  Sender: LUPIN
  Company Number: US-LUPIN PHARMACEUTICALS INC.-2025-10640

PATIENT
  Weight: 90.703 kg

DRUGS (1)
  1. ALBUTEROL SULFATE [Suspect]
     Active Substance: ALBUTEROL SULFATE
     Indication: Product used for unknown indication
     Dosage: PRN, AS NEEDED

REACTIONS (4)
  - Wrong technique in product usage process [Unknown]
  - Device deposit issue [Unknown]
  - Device issue [Unknown]
  - No adverse event [Unknown]
